FAERS Safety Report 19510480 (Version 1)
Quarter: 2021Q3

REPORT INFORMATION
  Report Type: Spontaneous
  Country: US (occurrence: US)
  Receive Date: 20210708
  Receipt Date: 20210708
  Transmission Date: 20211014
  Serious: Yes (Other)
  Sender: FDA-Public Use
  Company Number: None

PATIENT
  Age: 16 Year
  Sex: Female
  Weight: 49.5 kg

DRUGS (5)
  1. EFFEXOR XR [Concomitant]
     Active Substance: VENLAFAXINE HYDROCHLORIDE
  2. VITAMIN D3 [Concomitant]
     Active Substance: CHOLECALCIFEROL
  3. MULTIVITAMIN [Concomitant]
     Active Substance: VITAMINS
  4. ZYRTEC [Concomitant]
     Active Substance: CETIRIZINE HYDROCHLORIDE
  5. CEPHALEXIN 500MG CAPSULE [Suspect]
     Active Substance: CEPHALEXIN
     Indication: IMPETIGO
     Dosage: ?          QUANTITY:1 CAPSULE(S);?
     Route: 048
     Dates: start: 20210705, end: 20210707

REACTIONS (6)
  - Erythema [None]
  - Swelling face [None]
  - Rash [None]
  - Pharyngeal erythema [None]
  - Swelling [None]
  - Lip erythema [None]

NARRATIVE: CASE EVENT DATE: 20210707
